FAERS Safety Report 6674419-2 (Version None)
Quarter: 2010Q1

REPORT INFORMATION
  Report Type: 
  Country: None (occurrence: None)
  Receive Date: 20100330
  Receipt Date: 20090303
  Transmission Date: 20100710
  Serious: Yes (Hospitalization)
  Sender: FDA-Public Use
  Company Number: US-002561

PATIENT
  Age: 33 Year
  Sex: Female

DRUGS (3)
  1. MDP-BRACCO [Suspect]
     Indication: BONE SCAN
     Dates: start: 20090219, end: 20090219
  2. MDP-BRACCO [Suspect]
     Indication: POTTER'S SYNDROME
     Dates: start: 20090219, end: 20090219
  3. RIFAMPIN [Suspect]

REACTIONS (1)
  - HYPERSENSITIVITY [None]
